FAERS Safety Report 11539665 (Version 1)
Quarter: 2015Q3

REPORT INFORMATION
  Report Type: Spontaneous
  Country: GB (occurrence: GB)
  Receive Date: 20150923
  Receipt Date: 20150923
  Transmission Date: 20151125
  Serious: Yes (Other)
  Sender: FDA-Public Use
  Company Number: PHFR2015GB006887

PATIENT
  Sex: Male

DRUGS (1)
  1. CLOZARIL [Suspect]
     Active Substance: CLOZAPINE
     Indication: SCHIZOPHRENIA
     Dosage: UNK
     Route: 048
     Dates: start: 20150216

REACTIONS (5)
  - Psychotic disorder [Unknown]
  - Chronic obstructive pulmonary disease [Unknown]
  - Cardiomyopathy [Unknown]
  - Cardiomegaly [Unknown]
  - Left ventricular failure [Unknown]
